FAERS Safety Report 17053851 (Version 1)
Quarter: 2019Q4

REPORT INFORMATION
  Report Type: Spontaneous
  Country: US (occurrence: US)
  Receive Date: 20191120
  Receipt Date: 20191120
  Transmission Date: 20200122
  Serious: Yes (Other)
  Sender: FDA-Public Use
  Company Number: US-ALEXION PHARMACEUTICALS INC.-A201917710

PATIENT
  Age: 52 Year
  Sex: Female

DRUGS (1)
  1. SOLIRIS [Suspect]
     Active Substance: ECULIZUMAB
     Indication: PRODUCT USED FOR UNKNOWN INDICATION
     Dosage: 900 MG, 2 DOSES
     Route: 042

REACTIONS (3)
  - Rash [Unknown]
  - Thrombocytopenia [Recovering/Resolving]
  - Haemolysis [Recovered/Resolved]
